FAERS Safety Report 5323614-3 (Version None)
Quarter: 2007Q2

REPORT INFORMATION
  Report Type: 
  Country: None (occurrence: None)
  Receive Date: 20070510
  Receipt Date: 20070510
  Transmission Date: 20071010
  Serious: Yes (Other)
  Sender: FDA-Public Use
  Company Number: None

PATIENT
  Sex: Female
  Weight: 125.6464 kg

DRUGS (3)
  1. XANAX [Suspect]
     Indication: ANXIETY
     Dosage: #90 DAY SUPPLY 1 THREE TIMES A DAY PER OREM
     Dates: start: 19950101
  2. XANAX [Suspect]
     Indication: NERVOUSNESS
     Dosage: #90 DAY SUPPLY 1 THREE TIMES A DAY PER OREM
     Dates: start: 19950101
  3. XANAX [Suspect]
     Indication: PANIC ATTACK
     Dosage: #90 DAY SUPPLY 1 THREE TIMES A DAY PER OREM
     Dates: start: 19950101

REACTIONS (4)
  - DRUG INEFFECTIVE [None]
  - NAUSEA [None]
  - PHARMACEUTICAL PRODUCT COMPLAINT [None]
  - PRURITUS [None]
